FAERS Safety Report 12282219 (Version 2)
Quarter: 2016Q2

REPORT INFORMATION
  Report Type: Spontaneous
  Country: TR (occurrence: TR)
  Receive Date: 20160419
  Receipt Date: 20160503
  Transmission Date: 20160815
  Serious: Yes (Other)
  Sender: FDA-Public Use
  Company Number: TR-ROXANE LABORATORIES, INC.-2016-RO-00663RO

PATIENT
  Age: 13 Year
  Sex: Male

DRUGS (1)
  1. RISPERIDONE. [Suspect]
     Active Substance: RISPERIDONE
     Indication: PRODUCT USED FOR UNKNOWN INDICATION
     Dosage: 2.5 MG
     Route: 048

REACTIONS (2)
  - Left ventricular dysfunction [Recovered/Resolved]
  - Atrial tachycardia [Recovered/Resolved]
